FAERS Safety Report 6321405-8 (Version None)
Quarter: 2009Q3

REPORT INFORMATION
  Report Type: 
  Country: None (occurrence: None)
  Receive Date: 20090822
  Receipt Date: 20090116
  Transmission Date: 20100115
  Serious: No
  Sender: FDA-Public Use
  Company Number: US-ABBOTT-09P-163-0498669-00

PATIENT
  Sex: Male

DRUGS (3)
  1. NIASPAN [Suspect]
     Indication: BLOOD TRIGLYCERIDES INCREASED
     Dates: start: 20090109
  2. ASPIRIN [Concomitant]
     Indication: PROPHYLAXIS
     Dates: start: 20090109, end: 20090112
  3. ASPIRIN [Concomitant]
     Dosage: 162.5MG
     Dates: start: 20090112

REACTIONS (4)
  - FLUSHING [None]
  - PALPITATIONS [None]
  - PANIC REACTION [None]
  - SKIN BURNING SENSATION [None]
